FAERS Safety Report 7516978-3 (Version None)
Quarter: 2011Q2

REPORT INFORMATION
  Report Type: 
  Country: None (occurrence: None)
  Receive Date: 20110526
  Receipt Date: 20110526
  Transmission Date: 20111010
  Serious: No
  Sender: FDA-Public Use
  Company Number: None

PATIENT
  Sex: Female
  Weight: 55.5 kg

DRUGS (3)
  1. BEVACIZUMAB (RHUMAB VEGF) [Suspect]
     Dosage: 303.5 MG
  2. OXALIPLATIN (ELOXATIN) [Suspect]
     Dosage: 82 MG
  3. IRINOTECAN HCL [Suspect]
     Dosage: 197 MG

REACTIONS (1)
  - PERIPHERAL SENSORY NEUROPATHY [None]
